FAERS Safety Report 5684202-2 (Version None)
Quarter: 2008Q1

REPORT INFORMATION
  Report Type: 
  Country: None (occurrence: None)
  Receive Date: 20080327
  Receipt Date: 20080327
  Transmission Date: 20080703
  Serious: Yes (Other)
  Sender: FDA-Public Use
  Company Number: None

PATIENT
  Age: 34 Year
  Sex: Female
  Weight: 88.905 kg

DRUGS (1)
  1. PAROXETINE HCL [Suspect]
     Dates: start: 20030101, end: 20080311

REACTIONS (14)
  - CONFUSIONAL STATE [None]
  - DIZZINESS [None]
  - DRUG DEPENDENCE [None]
  - DRUG EXPOSURE DURING PREGNANCY [None]
  - FEELING ABNORMAL [None]
  - IMPAIRED DRIVING ABILITY [None]
  - IMPAIRED WORK ABILITY [None]
  - MENTAL IMPAIRMENT [None]
  - MOOD SWINGS [None]
  - NAUSEA [None]
  - PARAESTHESIA [None]
  - PREGNANCY [None]
  - VERTIGO [None]
  - WITHDRAWAL SYNDROME [None]
